FAERS Safety Report 6396454-4 (Version None)
Quarter: 2009Q4

REPORT INFORMATION
  Report Type: 
  Country: None (occurrence: None)
  Receive Date: 20091012
  Receipt Date: 20090928
  Transmission Date: 20100525
  Serious: Yes (Other)
  Sender: FDA-Public Use
  Company Number: IN-ROCHE-603221

PATIENT
  Age: 72 Year
  Sex: Male
  Weight: 45 kg

DRUGS (2)
  1. MIRCERA [Suspect]
     Route: 058
     Dates: start: 20080401, end: 20090109
  2. IRBESARTAN [Concomitant]

REACTIONS (1)
  - EOSINOPHILIA [None]
